FAERS Safety Report 21804718 (Version 3)
Quarter: 2025Q3

REPORT INFORMATION
  Report Type: Report from Study
  Country: EU (occurrence: EU)
  Receive Date: 20230102
  Receipt Date: 20250806
  Transmission Date: 20251021
  Serious: Yes (Hospitalization, Other)
  Sender: AUROBINDO
  Company Number: EU-PFIZER INC-202101781152

PATIENT
  Age: 6 Year
  Sex: Male

DRUGS (4)
  1. AMOXICILLIN\CLAVULANIC ACID [Suspect]
     Active Substance: AMOXICILLIN\CLAVULANIC ACID
     Indication: Drug provocation test
     Route: 065
  2. AZITHROMYCIN [Suspect]
     Active Substance: AZITHROMYCIN
     Indication: Product used for unknown indication
     Route: 065
  3. CEFIXIME [Suspect]
     Active Substance: CEFIXIME
     Indication: Product used for unknown indication
     Route: 065
  4. CEFACLOR [Suspect]
     Active Substance: CEFACLOR
     Indication: Product used for unknown indication
     Route: 065

REACTIONS (8)
  - Angioedema [Unknown]
  - Type I hypersensitivity [Unknown]
  - Enterocolitis [Recovering/Resolving]
  - Dehydration [Recovering/Resolving]
  - Leukocytosis [Recovering/Resolving]
  - Neutrophilia [Recovering/Resolving]
  - Vomiting [Recovering/Resolving]
  - Lethargy [Recovering/Resolving]
